FAERS Safety Report 11898718 (Version 2)
Quarter: 2016Q1

REPORT INFORMATION
  Report Type: Report from Study
  Country: HU (occurrence: HU)
  Receive Date: 20160108
  Receipt Date: 20160111
  Transmission Date: 20160526
  Serious: Yes (Other)
  Sender: FDA-Public Use
  Company Number: HU-BAYER-2015-449739

PATIENT
  Sex: Female
  Weight: 85 kg

DRUGS (2)
  1. NEXAVAR [Suspect]
     Active Substance: SORAFENIB
     Indication: HEPATOCELLULAR CARCINOMA
     Dosage: 800 MG, QD
     Route: 048
  2. NEXAVAR [Suspect]
     Active Substance: SORAFENIB
     Indication: HEPATOCELLULAR CARCINOMA
     Dosage: 400 MG, QD
     Route: 048
     Dates: start: 20150922, end: 20151209

REACTIONS (11)
  - Product use issue [None]
  - Pruritus [Recovered/Resolved]
  - Alopecia [Recovered/Resolved]
  - Tension [Not Recovered/Not Resolved]
  - Hepatocellular carcinoma [Not Recovered/Not Resolved]
  - Abdominal pain [None]
  - Pain in extremity [Not Recovered/Not Resolved]
  - Hypertension [Recovered/Resolved]
  - Back pain [Not Recovered/Not Resolved]
  - Mental disorder due to a general medical condition [None]
  - Nervousness [Not Recovered/Not Resolved]

NARRATIVE: CASE EVENT DATE: 201509
